FAERS Safety Report 23813862 (Version 1)
Quarter: 2024Q2

REPORT INFORMATION
  Report Type: Spontaneous
  Country: DE (occurrence: DE)
  Receive Date: 20240503
  Receipt Date: 20240503
  Transmission Date: 20240715
  Serious: Yes (Death, Hospitalization, Other)
  Sender: FDA-Public Use
  Company Number: DE-JNJFOC-20240432912

PATIENT
  Age: 9 Decade
  Sex: Male
  Weight: 78.4 kg

DRUGS (3)
  1. LENALIDOMIDE [Suspect]
     Active Substance: LENALIDOMIDE
     Indication: Amyloidosis
     Dosage: 15 MILLIGRAM,30 DAYS AFTER THERAPY: 08-OCT-2023
     Route: 048
     Dates: start: 20230804, end: 20230908
  2. DEXAMETHASONE [Suspect]
     Active Substance: DEXAMETHASONE
     Indication: Amyloidosis
     Dosage: 20 MILLIGRAM,30 DAYS AFTER THERAPY: 08-OCT-2023
     Route: 048
     Dates: start: 20230804, end: 20230908
  3. DARATUMUMAB [Suspect]
     Active Substance: DARATUMUMAB
     Indication: Amyloidosis
     Dosage: 1800 MILLIGRAM, 30 DAYS AFTER THERAPY: 08-OCT-2023
     Route: 058
     Dates: start: 20230804, end: 20230908

REACTIONS (3)
  - Pulmonary sepsis [Fatal]
  - Multiple organ dysfunction syndrome [Fatal]
  - Oedema [Recovered/Resolved]

NARRATIVE: CASE EVENT DATE: 20230918
